FAERS Safety Report 17245759 (Version 13)
Quarter: 2025Q1

REPORT INFORMATION
  Report Type: Spontaneous
  Country: US (occurrence: US)
  Receive Date: 20200108
  Receipt Date: 20250213
  Transmission Date: 20250408
  Serious: No
  Sender: BIOGEN
  Company Number: US-BIOGEN-2020BI00825201

PATIENT
  Sex: Female

DRUGS (3)
  1. TYSABRI [Suspect]
     Active Substance: NATALIZUMAB
     Indication: Multiple sclerosis
     Route: 050
     Dates: start: 20170627, end: 20210518
  2. TYSABRI [Suspect]
     Active Substance: NATALIZUMAB
     Route: 050
     Dates: start: 20220217
  3. TYSABRI [Suspect]
     Active Substance: NATALIZUMAB
     Route: 050

REACTIONS (5)
  - Prescribed underdose [Unknown]
  - Inappropriate schedule of product administration [Unknown]
  - Neuralgia [Not Recovered/Not Resolved]
  - Memory impairment [Unknown]
  - Muscle spasticity [Recovered/Resolved with Sequelae]

NARRATIVE: CASE EVENT DATE: 20200101
